FAERS Safety Report 21722834 (Version 1)
Quarter: 2022Q4

REPORT INFORMATION
  Report Type: Spontaneous
  Country: US (occurrence: None)
  Receive Date: 20221212
  Receipt Date: 20221212
  Transmission Date: 20230113
  Serious: No
  Sender: FDA-Public Use
  Company Number: None

PATIENT
  Age: 45 Year
  Sex: Female
  Weight: 78.75 kg

DRUGS (4)
  1. DEXTROAMPHET SACCHARAT, AMPHET ASPARTATE, DEXTROAMPHET SULFATE AND AMP [Suspect]
     Active Substance: AMPHETAMINE ASPARTATE\AMPHETAMINE SULFATE\DEXTROAMPHETAMINE SACCHARATE\DEXTROAMPHETAMINE SULFATE
     Indication: Attention deficit hyperactivity disorder
     Dosage: OTHER QUANTITY : 60 TABLET(S);?FREQUENCY : TWICE A DAY;?
     Route: 048
  2. Spironolactone 100mg-1x a day [Concomitant]
  3. venlafaxine 150 mg 1x a day [Concomitant]
  4. adderall 2x a day [Concomitant]

REACTIONS (5)
  - Drug ineffective [None]
  - Headache [None]
  - Abdominal distension [None]
  - Product substitution issue [None]
  - Impaired work ability [None]

NARRATIVE: CASE EVENT DATE: 20221212
